FAERS Safety Report 5068686-9 (Version None)
Quarter: 2006Q3

REPORT INFORMATION
  Report Type: 
  Country: None (occurrence: None)
  Receive Date: 20060802
  Receipt Date: 20060214
  Transmission Date: 20061208
  Serious: No
  Sender: FDA-Public Use
  Company Number: US-BRISTOL-MYERS SQUIBB COMPANY-13282843

PATIENT
  Age: 52 Year
  Sex: Female
  Weight: 91 kg

DRUGS (2)
  1. COUMADIN [Suspect]
     Indication: THROMBOSIS
     Dosage: DOSE REGIMEN:  5 MG MONDAY, WEDNESDAY AND FRIDAY; 7.5 MG ON OTHER DAYS.
     Dates: start: 20060127
  2. ACETAMINOPHEN [Concomitant]

REACTIONS (4)
  - BLUE TOE SYNDROME [None]
  - NODULE [None]
  - PAIN IN EXTREMITY [None]
  - SWELLING FACE [None]
